FAERS Safety Report 21311910 (Version 1)
Quarter: 2022Q3

REPORT INFORMATION
  Report Type: Spontaneous
  Country: CN (occurrence: CN)
  Receive Date: 20220909
  Receipt Date: 20220909
  Transmission Date: 20221026
  Serious: Yes (Other)
  Sender: FDA-Public Use
  Company Number: None

PATIENT
  Age: 46 Year
  Sex: Female
  Weight: 57 kg

DRUGS (4)
  1. CYCLOPHOSPHAMIDE [Suspect]
     Active Substance: CYCLOPHOSPHAMIDE
     Indication: Breast cancer female
     Dosage: 0.7 G, QD, DILUTED WITH 0.9% SODIUM CHLORIDE 100 ML (BASE)
     Route: 041
     Dates: start: 20220716, end: 20220716
  2. SODIUM CHLORIDE [Suspect]
     Active Substance: SODIUM CHLORIDE
     Indication: Medication dilution
     Dosage: 100 ML, QD DILUTED IN CYCLOPHOSPHAMIDE (0.7 G) (BASE)
     Route: 041
     Dates: start: 20220716, end: 20220716
  3. DEXTROSE MONOHYDRATE [Suspect]
     Active Substance: DEXTROSE MONOHYDRATE
     Indication: Medication dilution
     Dosage: 250 ML, QD, DILUTED IN DOXORUBICIN HYDROCHLORIDE LIPOSOME (60 MG) (BASE)
     Route: 041
     Dates: start: 20220716, end: 20220716
  4. DOXORUBICIN HYDROCHLORIDE [Suspect]
     Active Substance: DOXORUBICIN HYDROCHLORIDE
     Indication: Breast cancer female
     Dosage: 60 MG, QD, DILUTED WITH 5% GLUCOSE (250 ML) (BASE)
     Route: 041
     Dates: start: 20220716, end: 20220716

REACTIONS (1)
  - Drug-induced liver injury [Unknown]

NARRATIVE: CASE EVENT DATE: 20220722
